FAERS Safety Report 6901878-X (Version None)
Quarter: 2010Q3

REPORT INFORMATION
  Report Type: 
  Country: None (occurrence: None)
  Receive Date: 20100803
  Receipt Date: 20080328
  Transmission Date: 20110219
  Serious: No
  Sender: FDA-Public Use
  Company Number: US-PFIZER INC-2008028073

PATIENT
  Sex: Female
  Weight: 108.2 kg

DRUGS (2)
  1. LYRICA [Suspect]
     Indication: FIBROMYALGIA
     Route: 048
     Dates: start: 20080301
  2. OXYCODONE [Interacting]

REACTIONS (3)
  - CONTUSION [None]
  - DRUG INTERACTION [None]
  - ERYTHEMA [None]
